FAERS Safety Report 6441128-4 (Version None)
Quarter: 2009Q4

REPORT INFORMATION
  Report Type: 
  Country: None (occurrence: None)
  Receive Date: 20091113
  Receipt Date: 20091113
  Transmission Date: 20100525
  Serious: Yes (Other)
  Sender: FDA-Public Use
  Company Number: None

PATIENT
  Age: 57 Year
  Sex: Male
  Weight: 102.0593 kg

DRUGS (1)
  1. MIRAPEX [Suspect]
     Indication: MUSCLE SPASMS
     Dosage: AS NEEDED FOR LEG CRAMPS

REACTIONS (2)
  - ABNORMAL BEHAVIOUR [None]
  - GAMBLING [None]
